FAERS Safety Report 14638136 (Version 1)
Quarter: 2018Q1

REPORT INFORMATION
  Report Type: Spontaneous
  Country: US (occurrence: US)
  Receive Date: 20180314
  Receipt Date: 20180314
  Transmission Date: 20180509
  Serious: Yes (Hospitalization)
  Sender: FDA-Public Use
  Company Number: None

PATIENT
  Age: 27 Month
  Sex: Female

DRUGS (12)
  1. LEVETIRACETA [Concomitant]
  2. AMOXICILLIN. [Concomitant]
     Active Substance: AMOXICILLIN
  3. BACLOFEN. [Concomitant]
     Active Substance: BACLOFEN
  4. CORTISONE [Concomitant]
     Active Substance: CORTISONE\HYDROCORTISONE
  5. DIAZEPAM. [Concomitant]
     Active Substance: DIAZEPAM
  6. MIRALAX [Concomitant]
     Active Substance: POLYETHYLENE GLYCOL 3350
  7. VALIUM [Concomitant]
     Active Substance: DIAZEPAM
  8. REVATIO [Suspect]
     Active Substance: SILDENAFIL CITRATE
     Indication: PULMONARY ARTERIAL HYPERTENSION
     Dosage: 2 ML 3 TIMES A DAY; FEEDING TUBE?
     Dates: start: 20160818
  9. LANSOPRAZOLE. [Concomitant]
     Active Substance: LANSOPRAZOLE
  10. COENZYME [Concomitant]
     Active Substance: UBIDECARENONE
  11. SODIUM CHLOR [Concomitant]
     Active Substance: SODIUM CHLORIDE
  12. KEPPRA [Concomitant]
     Active Substance: LEVETIRACETAM

REACTIONS (2)
  - Drug dose omission [None]
  - Product distribution issue [None]

NARRATIVE: CASE EVENT DATE: 20180312
